FAERS Safety Report 4286405-0 (Version None)
Quarter: 2004Q1

REPORT INFORMATION
  Report Type: 
  Country: None (occurrence: None)
  Receive Date: 20040126
  Receipt Date: 20021223
  Transmission Date: 20041129
  Serious: Yes (Hospitalization)
  Sender: FDA-Public Use
  Company Number: 02P-163-0206972-00

PATIENT
  Sex: Male

DRUGS (2)
  1. HYTRIN [Suspect]
     Indication: HYPERTENSION
  2. UNKNOWN BLOOD PRESSURE MEDICATION [Concomitant]

REACTIONS (4)
  - ABASIA [None]
  - DYSSTASIA [None]
  - HYPOTENSION [None]
  - OVERDOSE [None]
